FAERS Safety Report 9140950 (Version 2)
Quarter: 2013Q1

REPORT INFORMATION
  Report Type: Spontaneous
  Country: AT (occurrence: AT)
  Receive Date: 20130305
  Receipt Date: 20130314
  Transmission Date: 20140127
  Serious: Yes (Other)
  Sender: FDA-Public Use
  Company Number: AT-PFIZER INC-2013053750

PATIENT
  Age: 68 Year
  Sex: Female

DRUGS (1)
  1. SORTIS [Suspect]
     Dosage: 20 MG, 1X/DAY
     Dates: start: 1995

REACTIONS (2)
  - Bronchostenosis [Unknown]
  - Pneumonia [Unknown]
